FAERS Safety Report 10970353 (Version 1)
Quarter: 2015Q1

REPORT INFORMATION
  Report Type: Spontaneous
  Country: CH (occurrence: CH)
  Receive Date: 20150331
  Receipt Date: 20150331
  Transmission Date: 20150721
  Serious: Yes (Hospitalization, Other)
  Sender: FDA-Public Use
  Company Number: CH-PFIZER INC-2015107193

PATIENT
  Age: 78 Year
  Sex: Male

DRUGS (4)
  1. LYRICA [Suspect]
     Active Substance: PREGABALIN
     Indication: PARTIAL SEIZURES
     Dosage: 1 DF, 2X/DAY
     Route: 048
     Dates: start: 201411, end: 20141216
  2. SERESTA [Concomitant]
     Active Substance: OXAZEPAM
     Dosage: UNK
  3. LAMICTAL [Suspect]
     Active Substance: LAMOTRIGINE
     Indication: PARTIAL SEIZURES
     Dosage: 75 MG, 2X/DAY
     Route: 048
     Dates: start: 201411, end: 20141216
  4. CORDARONE [Concomitant]
     Active Substance: AMIODARONE HYDROCHLORIDE
     Dosage: UNK

REACTIONS (4)
  - Pneumonia [Recovered/Resolved]
  - Pyrexia [Unknown]
  - Pancytopenia [Recovered/Resolved]
  - Blood folate decreased [Unknown]

NARRATIVE: CASE EVENT DATE: 201412
